FAERS Safety Report 9423383 (Version 2)
Quarter: 2013Q3

REPORT INFORMATION
  Report Type: Report from Study
  Country: DE (occurrence: DE)
  Receive Date: 20130726
  Receipt Date: 20130828
  Transmission Date: 20140515
  Serious: Yes (Hospitalization)
  Sender: FDA-Public Use
  Company Number: DE-PFIZER INC-2013214048

PATIENT
  Age: 70 Year
  Sex: Male
  Weight: 92 kg

DRUGS (11)
  1. TEMSIROLIMUS [Suspect]
     Indication: B-CELL LYMPHOMA
     Dosage: 25 MG, CYCLE 1, ADMINISTRATION ON DAY 1 AND 8 OF EACH CYCLE
     Dates: start: 20130710
  2. CISPLATIN [Suspect]
     Dosage: 210 MG, UNK
     Dates: start: 20130712
  3. RITUXIMAB [Concomitant]
     Dosage: 375 MG/M2, UNK
     Dates: start: 20130711
  4. DEXAMETHASONE [Concomitant]
     Dosage: 40 MG, UNK
     Dates: start: 20130712
  5. CYTARABINE [Concomitant]
     Dosage: 4100 MG, UNK
     Dates: start: 20130713
  6. CLEXANE [Concomitant]
     Dosage: DAILY DOSE: 120
  7. REKAWAN [Concomitant]
     Dosage: 1000 , AS NEEDED
  8. ALDACTONE [Concomitant]
     Dosage: DAILY DOSE: 25
  9. METOHEXAL [Concomitant]
     Dosage: DAILY DOSE: 24
  10. SPIRIVA [Concomitant]
     Dosage: 18 UG, DAILY
     Dates: start: 20110408
  11. CIPROBAY [Concomitant]
     Dosage: DAILY DOSE: 500

REACTIONS (2)
  - Renal failure acute [Recovered/Resolved]
  - Hyponatraemia [Recovered/Resolved]
